FAERS Safety Report 19966122 (Version 1)
Quarter: 2021Q4

REPORT INFORMATION
  Report Type: Report from Study
  Country: US (occurrence: US)
  Receive Date: 20211019
  Receipt Date: 20211019
  Transmission Date: 20220303
  Serious: Yes (Other)
  Sender: FDA-Public Use
  Company Number: US-BRISTOL-MYERS SQUIBB COMPANY-BMS-2021-106354

PATIENT
  Age: 67 Year
  Sex: Male
  Weight: 133.79 kg

DRUGS (4)
  1. APIXABAN [Suspect]
     Active Substance: APIXABAN
     Indication: Product used for unknown indication
     Dosage: UNK
     Route: 065
  2. HUMIRA [Suspect]
     Active Substance: ADALIMUMAB
     Indication: Psoriasis
     Dosage: 40 MILLIGRAM, 1 IN 2 WEEKS
     Route: 058
  3. MODERNA COVID-19 VACCINE [Concomitant]
     Active Substance: CX-024414
     Indication: Product used for unknown indication
     Dosage: 1 IN ONCE
     Route: 030
     Dates: start: 20210301, end: 20210301
  4. MODERNA COVID-19 VACCINE [Concomitant]
     Active Substance: CX-024414
     Dosage: 1 IN ONCE
     Route: 030
     Dates: start: 20210329, end: 20210329

REACTIONS (3)
  - Gastric disorder [Not Recovered/Not Resolved]
  - Gastric haemorrhage [Not Recovered/Not Resolved]
  - Ulcer [Unknown]
